FAERS Safety Report 5463383-X (Version None)
Quarter: 2007Q3

REPORT INFORMATION
  Report Type: 
  Country: None (occurrence: None)
  Receive Date: 20070920
  Receipt Date: 20070914
  Transmission Date: 20080115
  Serious: Yes (Hospitalization)
  Sender: FDA-Public Use
  Company Number: US-SANOFI-SYNTHELABO-A03200705587

PATIENT
  Sex: Female
  Weight: 76.19 kg

DRUGS (5)
  1. HUMULIN N [Concomitant]
     Dosage: 20 UNITS QAM
     Route: 065
  2. HUMULIN N [Concomitant]
     Dosage: 5-10 UNITS QPM
     Route: 065
  3. ATACAND [Concomitant]
     Route: 065
     Dates: start: 20070601
  4. JANUMET [Concomitant]
     Dosage: 50/1000 MG BID
     Route: 065
     Dates: start: 20070601
  5. PLAVIX [Suspect]
     Indication: CEREBROVASCULAR ACCIDENT
     Route: 048
     Dates: start: 20040101

REACTIONS (3)
  - CARDIAC PACEMAKER INSERTION [None]
  - FALL [None]
  - PARAESTHESIA [None]
